FAERS Safety Report 7380389-4 (Version None)
Quarter: 2011Q1

REPORT INFORMATION
  Report Type: 
  Country: None (occurrence: None)
  Receive Date: 20110329
  Receipt Date: 20110321
  Transmission Date: 20110831
  Serious: Yes (Hospitalization, Other)
  Sender: FDA-Public Use
  Company Number: US-ROCHE-766452

PATIENT

DRUGS (5)
  1. FLUOROURACIL [Suspect]
     Indication: COLORECTAL CANCER
     Route: 065
  2. IRINOTECAN [Suspect]
     Indication: COLORECTAL CANCER
     Route: 065
  3. LEUCOVORIN [Suspect]
     Indication: COLORECTAL CANCER
     Route: 065
  4. OXALIPLATIN [Suspect]
     Indication: COLORECTAL CANCER
     Route: 065
  5. BEVACIZUMAB [Suspect]
     Indication: COLORECTAL CANCER
     Dosage: ON DAYS 15 AND 29 ONLY
     Route: 065

REACTIONS (12)
  - INFECTION [None]
  - MUCOSAL INFLAMMATION [None]
  - CATHETER SITE HAEMORRHAGE [None]
  - FULL BLOOD COUNT DECREASED [None]
  - DIARRHOEA [None]
  - ABDOMINAL PAIN [None]
  - THROMBOSIS [None]
  - TOXICITY TO VARIOUS AGENTS [None]
  - ULCER [None]
  - MALAISE [None]
  - NASAL SEPTUM PERFORATION [None]
  - PORTAL VEIN THROMBOSIS [None]
